FAERS Safety Report 8254406 (Version 2)
Quarter: 2014Q2

REPORT INFORMATION
  Report Type: Spontaneous
  Country: US (occurrence: US)
  Receive Date: 20111118
  Receipt Date: 20140425
  Transmission Date: 20141212
  Serious: Yes (Congenital Anomaly, Other)
  Sender: FDA-Public Use
  Company Number: US-PFIZER INC-2011281028

PATIENT
  Sex: Male

DRUGS (7)
  1. ZOLOFT [Suspect]
     Indication: ANXIETY
     Dosage: UNK
     Route: 064
     Dates: start: 200206
  2. ZOLOFT [Suspect]
     Indication: DEPRESSION
  3. ADVIL [Concomitant]
     Dosage: UNK, OCCASIONALLY
     Route: 064
  4. TYLENOL [Concomitant]
     Dosage: UNK, OCCASIONALLY
     Route: 064
  5. PRENATAL VITAMINS [Concomitant]
     Dosage: UNK
     Route: 064
  6. FOLIC ACID [Concomitant]
     Dosage: UNK
     Route: 064
  7. BRETHINE [Concomitant]
     Dosage: UNK
     Route: 064

REACTIONS (3)
  - Maternal exposure during pregnancy [Unknown]
  - Cleft lip [Unknown]
  - Congenital musculoskeletal anomaly [Unknown]
